FAERS Safety Report 7029217-7 (Version None)
Quarter: 2010Q4

REPORT INFORMATION
  Report Type: 
  Country: None (occurrence: None)
  Receive Date: 20101005
  Receipt Date: 20100924
  Transmission Date: 20110411
  Serious: Yes (Hospitalization)
  Sender: FDA-Public Use
  Company Number: BR-US-EMD SERONO, INC.-7019016

PATIENT
  Sex: Female

DRUGS (5)
  1. REBIF [Suspect]
     Indication: RELAPSING-REMITTING MULTIPLE SCLEROSIS
     Route: 058
     Dates: end: 20100501
  2. REBIF [Suspect]
     Route: 058
     Dates: start: 20100524
  3. ADATEOROS [Concomitant]
  4. NAPRIX [Concomitant]
  5. NATRILIX [Concomitant]

REACTIONS (7)
  - CHILLS [None]
  - FALL [None]
  - FATIGUE [None]
  - HEADACHE [None]
  - MENISCUS LESION [None]
  - PAIN [None]
  - THROMBOSIS [None]
